FAERS Safety Report 19649624 (Version 1)
Quarter: 2021Q3

REPORT INFORMATION
  Report Type: Spontaneous
  Country: US (occurrence: US)
  Receive Date: 20210802
  Receipt Date: 20210802
  Transmission Date: 20211014
  Serious: No
  Sender: FDA-Public Use
  Company Number: US-PFIZER INC-2021567560

PATIENT
  Age: 61 Year
  Sex: Female
  Weight: 67.12 kg

DRUGS (1)
  1. INLYTA [Suspect]
     Active Substance: AXITINIB
     Indication: BONE NEOPLASM
     Dosage: 5 MG, 2X/DAY
     Route: 048
     Dates: start: 20210422

REACTIONS (5)
  - Pain in jaw [Unknown]
  - Arthralgia [Unknown]
  - Peripheral swelling [Unknown]
  - Off label use [Unknown]
  - Myalgia [Unknown]

NARRATIVE: CASE EVENT DATE: 20210422
